FAERS Safety Report 5233976-3 (Version None)
Quarter: 2007Q1

REPORT INFORMATION
  Report Type: 
  Country: None (occurrence: None)
  Receive Date: 20070208
  Receipt Date: 20070129
  Transmission Date: 20070707
  Serious: Yes (Death, Other)
  Sender: FDA-Public Use
  Company Number: US-PFIZER INC-2006114061

PATIENT
  Sex: Male
  Weight: 99.8 kg

DRUGS (11)
  1. GEODON [Suspect]
     Indication: SCHIZOPHRENIA
  2. GEODON [Suspect]
     Indication: MENTAL IMPAIRMENT
  3. COLACE [Concomitant]
  4. CLOZARIL [Concomitant]
  5. HALOPERIDOL DECANOATE [Concomitant]
  6. PAXIL [Concomitant]
  7. TOPAMAX [Concomitant]
  8. GLIPIZIDE [Concomitant]
  9. LISINOPRIL [Concomitant]
     Route: 048
  10. ALL OTHER THERAPEUTIC PRODUCTS [Concomitant]
  11. OXYBUTYNIN [Concomitant]

REACTIONS (5)
  - ARTERIOSCLEROSIS [None]
  - DRUG INEFFECTIVE [None]
  - HIGH DENSITY LIPOPROTEIN DECREASED [None]
  - MYOCARDITIS [None]
  - PNEUMONIA [None]
